FAERS Safety Report 11232337 (Version 1)
Quarter: 2015Q3

REPORT INFORMATION
  Report Type: Spontaneous
  Country: JP (occurrence: JP)
  Receive Date: 20150701
  Receipt Date: 20150701
  Transmission Date: 20151125
  Serious: Yes (Other)
  Sender: FDA-Public Use
  Company Number: JP-JNJFOC-20150619672

PATIENT

DRUGS (3)
  1. ITRACONAZOLE. [Suspect]
     Active Substance: ITRACONAZOLE
     Indication: PRODUCT USED FOR UNKNOWN INDICATION
     Route: 048
  2. ITRACONAZOLE. [Suspect]
     Active Substance: ITRACONAZOLE
     Indication: PRODUCT USED FOR UNKNOWN INDICATION
     Route: 048
  3. VINCA ALKALOIDS AND ANALOGUES [Interacting]
     Active Substance: UNSPECIFIED INGREDIENT
     Indication: HAEMATOLOGICAL MALIGNANCY
     Route: 065

REACTIONS (4)
  - Ileus paralytic [Unknown]
  - Neuropathy peripheral [Unknown]
  - Drug interaction [Unknown]
  - Constipation [Unknown]
